FAERS Safety Report 21712363 (Version 1)
Quarter: 2022Q4

REPORT INFORMATION
  Report Type: Spontaneous
  Country: JP (occurrence: JP)
  Receive Date: 20221212
  Receipt Date: 20221212
  Transmission Date: 20230113
  Serious: Yes (Other)
  Sender: FDA-Public Use
  Company Number: JP-ORGANON-O2212JPN000106J

PATIENT
  Sex: Male

DRUGS (3)
  1. ALENDRONATE SODIUM [Suspect]
     Active Substance: ALENDRONATE SODIUM
     Dosage: UNK
     Route: 048
  2. CLOPIDOGREL BISULFATE [Concomitant]
     Active Substance: CLOPIDOGREL BISULFATE
     Dosage: THE PATIENT TOOK CLOPIDOGREL SULFATE AT A MEALTIME AT LEAST 30 MINUTES AFTER TAKING ALENDRONATE SODI
     Route: 048
  3. LANSOPRAZOLE [Concomitant]
     Active Substance: LANSOPRAZOLE
     Dosage: ORAL ADMINISTRATION AT NOON
     Route: 048

REACTIONS (1)
  - Haematochezia [Unknown]
